FAERS Safety Report 19035847 (Version 1)
Quarter: 2021Q1

REPORT INFORMATION
  Report Type: Spontaneous
  Country: IE (occurrence: IE)
  Receive Date: 20210321
  Receipt Date: 20210321
  Transmission Date: 20210420
  Serious: Yes (Other)
  Sender: FDA-Public Use
  Company Number: IE-TEVA-2021-IE-1891289

PATIENT
  Sex: Male

DRUGS (2)
  1. DOXYCYCLINE TEVA 100MG HARD CAPSULES [Suspect]
     Active Substance: DOXYCYCLINE
     Indication: ACNE
     Dosage: 100MG
     Route: 048
     Dates: start: 20210202, end: 20210211
  2. ESOMEPRAZOLE (G) [Concomitant]
     Active Substance: ESOMEPRAZOLE
     Indication: GASTRITIS PROPHYLAXIS
     Dates: start: 20210202, end: 20210211

REACTIONS (3)
  - Paraesthesia [Not Recovered/Not Resolved]
  - Hypoaesthesia [Not Recovered/Not Resolved]
  - Sensory loss [Not Recovered/Not Resolved]

NARRATIVE: CASE EVENT DATE: 20210202
